FAERS Safety Report 18357822 (Version 1)
Quarter: 2020Q4

REPORT INFORMATION
  Report Type: Spontaneous
  Country: US (occurrence: US)
  Receive Date: 20201008
  Receipt Date: 20201008
  Transmission Date: 20210114
  Serious: No
  Sender: FDA-Public Use
  Company Number: US-TERSERA THERAPEUTICS LLC-2020TRS001509

PATIENT

DRUGS (3)
  1. XPOVIO [Suspect]
     Active Substance: SELINEXOR
     Indication: PRODUCT USED FOR UNKNOWN INDICATION
     Dosage: 4 DOSAGE FORM, 4 TABLETS (80 MG TOTAL) BY MOUTH ONCE WEEKLY FOR 3 WEEKS OUT OF EVERY 5 WEEKS (TUESDA
     Route: 048
     Dates: start: 20190927
  2. DEXAMETHASONE. [Suspect]
     Active Substance: DEXAMETHASONE
     Indication: PRODUCT USED FOR UNKNOWN INDICATION
     Dosage: UNK
     Route: 065
  3. VARUBI [Suspect]
     Active Substance: ROLAPITANT
     Indication: PLASMA CELL MYELOMA
     Dosage: 2 DOSAGE FORM (180 MG TOTAL, 2 TABLETS BY MOUTH ONCE EVERY 2 WEEKS)
     Route: 048
     Dates: start: 20190927

REACTIONS (3)
  - Haemoglobin decreased [Unknown]
  - Burning sensation [Recovering/Resolving]
  - Pruritus [Recovering/Resolving]
